FAERS Safety Report 16263852 (Version 6)
Quarter: 2019Q3

REPORT INFORMATION
  Report Type: Spontaneous
  Country: BE (occurrence: BE)
  Receive Date: 20190502
  Receipt Date: 20190821
  Transmission Date: 20191004
  Serious: Yes (Other)
  Sender: FDA-Public Use
  Company Number: BE-SA-2019SA118485

PATIENT
  Age: 31 Year
  Sex: Female

DRUGS (1)
  1. LEMTRADA [Suspect]
     Active Substance: ALEMTUZUMAB
     Indication: MULTIPLE SCLEROSIS
     Dosage: 12 MG, UNK
     Route: 041
     Dates: start: 20190114, end: 20190118

REACTIONS (2)
  - Eosinophilic colitis [Recovered/Resolved]
  - Diarrhoea [Recovered/Resolved]

NARRATIVE: CASE EVENT DATE: 20190301
